FAERS Safety Report 6268901-X (Version None)
Quarter: 2009Q3

REPORT INFORMATION
  Report Type: 
  Country: None (occurrence: None)
  Receive Date: 20090715
  Receipt Date: 20090706
  Transmission Date: 20100115
  Serious: Yes (Hospitalization, Other)
  Sender: FDA-Public Use
  Company Number: PHEH2008US02886

PATIENT
  Sex: Female

DRUGS (1)
  1. ZOMETA [Suspect]

REACTIONS (11)
  - ACTIVITIES OF DAILY LIVING IMPAIRED [None]
  - ANAEMIA [None]
  - ANXIETY [None]
  - BREAST CANCER [None]
  - BREAST HAEMORRHAGE [None]
  - DISABILITY [None]
  - FAILURE TO THRIVE [None]
  - INJURY [None]
  - METASTASES TO SKIN [None]
  - OSTEONECROSIS [None]
  - PAIN [None]
